FAERS Safety Report 21687720 (Version 1)
Quarter: 2022Q4

REPORT INFORMATION
  Report Type: Spontaneous
  Country: CN (occurrence: CN)
  Receive Date: 20221206
  Receipt Date: 20221206
  Transmission Date: 20230112
  Serious: Yes (Hospitalization)
  Sender: FDA-Public Use
  Company Number: CN-MYLANLABS-2022M1135250

PATIENT
  Age: 23 Year
  Sex: Male

DRUGS (4)
  1. AMLODIPINE [Suspect]
     Active Substance: AMLODIPINE BESYLATE
     Indication: Product used for unknown indication
     Dosage: 10 DOSAGE FORM (10 TABLETS)
     Route: 048
  2. NIFEDIPINE [Suspect]
     Active Substance: NIFEDIPINE
     Indication: Product used for unknown indication
     Dosage: 60 DOSAGE FORM (60 TABLETS)
     Route: 048
  3. DIGOXIN [Concomitant]
     Active Substance: DIGOXIN
     Dosage: 100 DOSAGE FORM(100 TABLETS)
     Route: 048
  4. CAPTOPRIL [Concomitant]
     Active Substance: CAPTOPRIL
     Dosage: 200 DOSAGE FORM (200 TABLETS)
     Route: 048

REACTIONS (31)
  - Toxicity to various agents [Unknown]
  - Shock [Unknown]
  - Leukocytosis [Not Recovered/Not Resolved]
  - Acute kidney injury [Unknown]
  - Troponin I increased [Not Recovered/Not Resolved]
  - Multiple organ dysfunction syndrome [Unknown]
  - Cardiac arrest [Unknown]
  - Hepatic failure [Unknown]
  - Myocardial injury [Unknown]
  - Blood creatine phosphokinase increased [Not Recovered/Not Resolved]
  - Metabolic acidosis [Unknown]
  - Pancreatic injury [Unknown]
  - Coagulopathy [Unknown]
  - Cardiac arrest [Unknown]
  - Alanine aminotransferase increased [Unknown]
  - Aspartate aminotransferase increased [Unknown]
  - Blood bilirubin increased [Unknown]
  - pH body fluid increased [Unknown]
  - Lipase increased [Unknown]
  - Amylase increased [Unknown]
  - Prothrombin time prolonged [Unknown]
  - Blood thromboplastin increased [Recovering/Resolving]
  - Activated partial thromboplastin time prolonged [Unknown]
  - Fibrin degradation products increased [Unknown]
  - Fibrin D dimer increased [Unknown]
  - Hyperglycaemia [Not Recovered/Not Resolved]
  - Nausea [Unknown]
  - Vomiting [Unknown]
  - Dizziness [Unknown]
  - Thrombocytopenia [Unknown]
  - Intentional overdose [Unknown]
